FAERS Safety Report 10712109 (Version 1)
Quarter: 2015Q1

REPORT INFORMATION
  Report Type: Spontaneous
  Country: US (occurrence: US)
  Receive Date: 20150114
  Receipt Date: 20150114
  Transmission Date: 20150721
  Serious: Yes (Other)
  Sender: FDA-Public Use
  Company Number: US-ASTRAZENECA-2015SE01703

PATIENT
  Age: 34 Year
  Sex: Female
  Weight: 47.2 kg

DRUGS (11)
  1. SEROQUEL [Suspect]
     Active Substance: QUETIAPINE FUMARATE
     Indication: BIPOLAR DISORDER
     Route: 048
     Dates: start: 2005
  2. SEROQUEL [Suspect]
     Active Substance: QUETIAPINE FUMARATE
     Indication: SCHIZOPHRENIA
     Route: 048
     Dates: start: 2005
  3. SEROQUEL [Suspect]
     Active Substance: QUETIAPINE FUMARATE
     Indication: SCHIZOPHRENIA
     Dosage: ONE QUARTER OF HER SEROQUEL
     Route: 048
  4. SEROQUEL [Suspect]
     Active Substance: QUETIAPINE FUMARATE
     Indication: SCHIZOPHRENIA
     Route: 048
     Dates: start: 201411, end: 20150103
  5. SEROQUEL [Suspect]
     Active Substance: QUETIAPINE FUMARATE
     Indication: BIPOLAR DISORDER
     Dosage: AT NIGHT
     Route: 048
     Dates: end: 201411
  6. SEROQUEL [Suspect]
     Active Substance: QUETIAPINE FUMARATE
     Indication: BIPOLAR DISORDER
     Dosage: ONE QUARTER OF HER SEROQUEL
     Route: 048
  7. UNSPECIFIED [Suspect]
     Active Substance: UNSPECIFIED INGREDIENT
     Route: 065
  8. SEROQUEL [Suspect]
     Active Substance: QUETIAPINE FUMARATE
     Indication: BIPOLAR DISORDER
     Route: 048
     Dates: start: 201411, end: 20150103
  9. LATUDA [Suspect]
     Active Substance: LURASIDONE HYDROCHLORIDE
     Route: 065
  10. SEROQUEL [Suspect]
     Active Substance: QUETIAPINE FUMARATE
     Indication: SCHIZOPHRENIA
     Dosage: AT NIGHT
     Route: 048
     Dates: end: 201411
  11. DEPAKOTE [Suspect]
     Active Substance: DIVALPROEX SODIUM
     Route: 065

REACTIONS (19)
  - Face injury [Unknown]
  - Panic attack [Unknown]
  - Fall [Unknown]
  - Weight increased [Unknown]
  - Blindness [Unknown]
  - Hearing impaired [Unknown]
  - Loss of consciousness [Unknown]
  - Heart rate increased [Unknown]
  - Feeling abnormal [Unknown]
  - Swelling [Unknown]
  - Contusion [Unknown]
  - Dyskinesia [Unknown]
  - Intentional product misuse [Unknown]
  - Tinnitus [Unknown]
  - Head injury [Unknown]
  - Dyspnoea [Recovered/Resolved]
  - Pharyngeal oedema [Unknown]
  - Visual impairment [Unknown]
  - Palpitations [Unknown]

NARRATIVE: CASE EVENT DATE: 2005
